FAERS Safety Report 8792373 (Version 1)
Quarter: 2012Q4

REPORT INFORMATION
  Report Type: 
  Country: US (occurrence: US)
  Receive Date: 20120918
  Receipt Date: 20120918
  Transmission Date: 20130627
  Serious: No
  Sender: FDA-Public Use
  Company Number: US-PFIZER INC-2012228124

PATIENT
  Age: 60 Year
  Sex: Female
  Weight: 53.06 kg

DRUGS (2)
  1. INDERAL LA [Suspect]
     Indication: HYPERTENSION
     Dosage: 80 mg, 1x/day
     Route: 048
     Dates: start: 201201
  2. BABY ASPIRIN [Concomitant]
     Indication: COAGULOPATHY
     Dosage: UNK

REACTIONS (1)
  - Dizziness [Not Recovered/Not Resolved]
